FAERS Safety Report 8957365 (Version 2)
Quarter: 2012Q4

REPORT INFORMATION
  Report Type: 
  Country: None (occurrence: IT)
  Receive Date: 20121211
  Receipt Date: 20121227
  Transmission Date: 20130627
  Serious: Yes (Other)
  Sender: FDA-Public Use
  Company Number: -MYLANLABS-2012S1024656

PATIENT
  Age: 82 Year
  Sex: Male

DRUGS (11)
  1. QUETIAPINE [Suspect]
     Indication: DEMENTIA ALZHEIMER^S TYPE
     Route: 048
     Dates: start: 20121119, end: 20121125
  2. AVODART [Concomitant]
     Indication: PRODUCT USED FOR UNKNOWN INDICATION
  3. ULCEZOL [Concomitant]
     Indication: PRODUCT USED FOR UNKNOWN INDICATION
  4. PRADIF [Concomitant]
     Indication: PRODUCT USED FOR UNKNOWN INDICATION
  5. LUVION /00252501/ [Concomitant]
     Indication: PRODUCT USED FOR UNKNOWN INDICATION
  6. FERRO C /00023503/ [Concomitant]
     Indication: PRODUCT USED FOR UNKNOWN INDICATION
  7. ARICEPT [Concomitant]
     Indication: PRODUCT USED FOR UNKNOWN INDICATION
  8. LASIX [Concomitant]
     Indication: PRODUCT USED FOR UNKNOWN INDICATION
  9. FOLINA /00024201/ [Concomitant]
     Indication: PRODUCT USED FOR UNKNOWN INDICATION
  10. BISOPROLOL [Concomitant]
     Indication: PRODUCT USED FOR UNKNOWN INDICATION
  11. CARDIOASPIRIN [Concomitant]
     Indication: PRODUCT USED FOR UNKNOWN INDICATION

REACTIONS (3)
  - Drug ineffective [Recovered/Resolved]
  - Product substitution issue [Unknown]
  - Agitation [Unknown]
